FAERS Safety Report 20685720 (Version 1)
Quarter: 2022Q2

REPORT INFORMATION
  Report Type: Spontaneous
  Country: US (occurrence: US)
  Receive Date: 20220407
  Receipt Date: 20220407
  Transmission Date: 20220720
  Serious: No
  Sender: FDA-Public Use
  Company Number: US-PFIZER INC-2021757264

PATIENT
  Age: 65 Year
  Sex: Female

DRUGS (1)
  1. HYDROCORTISONE ACETATE [Suspect]
     Active Substance: HYDROCORTISONE ACETATE
     Indication: Dermatitis atopic
     Dosage: UNK
     Route: 061

REACTIONS (1)
  - Drug ineffective [Unknown]
